FAERS Safety Report 11130427 (Version 6)
Quarter: 2018Q2

REPORT INFORMATION
  Report Type: Spontaneous
  Country: US (occurrence: US)
  Receive Date: 20150522
  Receipt Date: 20180511
  Transmission Date: 20180711
  Serious: No
  Sender: FDA-Public Use
  Company Number: US-ASTRAZENECA-2014SE90883

PATIENT
  Age: 25011 Day
  Sex: Female
  Weight: 87.1 kg

DRUGS (23)
  1. XIGDUO XR [Suspect]
     Active Substance: DAPAGLIFLOZIN PROPANEDIOL\METFORMIN HYDROCHLORIDE
     Indication: DIABETES MELLITUS
     Dosage: 5 MG/1000 MG TWO TIMES A DAY
     Route: 048
     Dates: start: 2016
  2. XIGDUO XR [Suspect]
     Active Substance: DAPAGLIFLOZIN PROPANEDIOL\METFORMIN HYDROCHLORIDE
     Indication: DIABETES MELLITUS
     Dosage: 5/1000 MILIGRAMS. DAILY
     Route: 048
  3. BYDUREON [Suspect]
     Active Substance: EXENATIDE
     Indication: TYPE 2 DIABETES MELLITUS
     Route: 058
     Dates: start: 20141014, end: 2014
  4. DICLOFENAC [Concomitant]
     Active Substance: DICLOFENAC
     Indication: ARTHRITIS
     Route: 048
  5. XIGDUO XR [Suspect]
     Active Substance: DAPAGLIFLOZIN PROPANEDIOL\METFORMIN HYDROCHLORIDE
     Indication: TYPE 2 DIABETES MELLITUS
     Dosage: 5/1000 MILIGRAMS. DAILY
     Route: 048
  6. NORVASC [Concomitant]
     Active Substance: AMLODIPINE BESYLATE
     Indication: BLOOD PRESSURE MEASUREMENT
  7. FENOFIBRATE. [Concomitant]
     Active Substance: FENOFIBRATE
     Indication: ARTHRITIS
     Route: 048
  8. BYDUREON [Suspect]
     Active Substance: EXENATIDE
     Indication: TYPE 2 DIABETES MELLITUS
     Route: 058
     Dates: start: 2014
  9. BYDUREON [Suspect]
     Active Substance: EXENATIDE
     Indication: TYPE 2 DIABETES MELLITUS
     Route: 058
     Dates: start: 2015
  10. BYDUREON BCISE [Suspect]
     Active Substance: EXENATIDE
     Indication: TYPE 2 DIABETES MELLITUS
     Route: 058
     Dates: start: 201801
  11. BYETTA [Suspect]
     Active Substance: EXENATIDE
     Indication: DIABETES MELLITUS
     Route: 058
     Dates: start: 2014, end: 2014
  12. XIGDUO XR [Suspect]
     Active Substance: DAPAGLIFLOZIN PROPANEDIOL\METFORMIN HYDROCHLORIDE
     Indication: TYPE 2 DIABETES MELLITUS
     Dosage: 5 MG/1000 MG TWO TIMES A DAY
     Route: 048
     Dates: start: 2016
  13. OMEPRAZOLE. [Suspect]
     Active Substance: OMEPRAZOLE
     Indication: GASTROOESOPHAGEAL REFLUX DISEASE
     Route: 048
  14. LEVEMIR [Concomitant]
     Active Substance: INSULIN DETEMIR
  15. BABY ASPIRIN [Concomitant]
     Active Substance: ASPIRIN
  16. COENZYME Q10 [Concomitant]
     Active Substance: UBIDECARENONE
  17. TRESIBA [Concomitant]
     Active Substance: INSULIN DEGLUDEC
     Indication: TYPE 2 DIABETES MELLITUS
     Route: 058
  18. SIMVASTATIN. [Concomitant]
     Active Substance: SIMVASTATIN
     Indication: BLOOD CHOLESTEROL ABNORMAL
     Route: 048
  19. METFORMIN HYDROCHLORIDE. [Concomitant]
     Active Substance: METFORMIN HYDROCHLORIDE
     Indication: TYPE 2 DIABETES MELLITUS
  20. FISH OIL [Concomitant]
     Active Substance: FISH OIL
  21. LISINOPRIL. [Suspect]
     Active Substance: LISINOPRIL
     Indication: HYPERTENSION
     Route: 048
     Dates: start: 2007
  22. TRIAMTERENE. [Concomitant]
     Active Substance: TRIAMTERENE
     Indication: DIURETIC THERAPY
     Dosage: 37.5-25 MG/DAILY
  23. VITAMIN D [Concomitant]
     Active Substance: CHOLECALCIFEROL

REACTIONS (15)
  - Arthritis [Unknown]
  - Device malfunction [Unknown]
  - Injection site nodule [Not Recovered/Not Resolved]
  - Intentional product misuse [Unknown]
  - Off label use [Unknown]
  - Injection site pruritus [Recovering/Resolving]
  - Type 2 diabetes mellitus [Unknown]
  - Injection site extravasation [Unknown]
  - Underdose [Unknown]
  - Drug dose omission [Unknown]
  - Drug ineffective [Unknown]
  - Haemorrhagic diathesis [Unknown]
  - Blood glucose increased [Unknown]
  - Injection site erythema [Recovered/Resolved]
  - Injection site haemorrhage [Unknown]

NARRATIVE: CASE EVENT DATE: 2014
